FAERS Safety Report 9610609 (Version 1)
Quarter: 2013Q4

REPORT INFORMATION
  Report Type: Spontaneous
  Country: US (occurrence: US)
  Receive Date: 20131009
  Receipt Date: 20131009
  Transmission Date: 20140711
  Serious: Yes (Other)
  Sender: FDA-Public Use
  Company Number: CHPA2013US015250

PATIENT
  Age: 83 Year
  Sex: Female

DRUGS (5)
  1. EXCEDRIN MIGRAINE [Suspect]
     Indication: MIGRAINE
     Dosage: 1 DF, UNK
     Route: 048
  2. EXCEDRIN TENSION HEADACHE [Suspect]
     Indication: OFF LABEL USE
     Dosage: 1 DF, UNK
     Route: 048
  3. EXCEDRIN TENSION HEADACHE [Suspect]
     Indication: TENSION HEADACHE
  4. EXCEDRIN TENSION HEADACHE [Suspect]
     Indication: MIGRAINE
  5. ACETYLSALICYLIC ACID [Suspect]
     Indication: MIGRAINE
     Dosage: UNK, UNK
     Route: 048

REACTIONS (7)
  - Femur fracture [Recovered/Resolved]
  - Fall [Recovered/Resolved]
  - Arthritis [Not Recovered/Not Resolved]
  - Feeling abnormal [Recovered/Resolved]
  - Underdose [Unknown]
  - Expired drug administered [Unknown]
  - Therapeutic response decreased [Unknown]
